FAERS Safety Report 12675669 (Version 1)
Quarter: 2016Q3

REPORT INFORMATION
  Report Type: Spontaneous
  Country: US (occurrence: US)
  Receive Date: 20160823
  Receipt Date: 20160823
  Transmission Date: 20161109
  Serious: No
  Sender: FDA-Public Use
  Company Number: US-JAZZ-2016-US-006395

PATIENT
  Sex: Male

DRUGS (23)
  1. XYREM [Suspect]
     Active Substance: SODIUM OXYBATE
     Dosage: 4.5 G, BID
     Route: 048
     Dates: start: 201512
  2. LORATADINE. [Concomitant]
     Active Substance: LORATADINE
  3. OMEGA 3 FISH OIL [Concomitant]
     Active Substance: FISH OIL\OMEGA-3 FATTY ACIDS
  4. ALLEGRA ALLERGY [Concomitant]
     Active Substance: FEXOFENADINE HYDROCHLORIDE
  5. CORAL CALCIUM [Concomitant]
  6. ASMANEX [Concomitant]
     Active Substance: MOMETASONE FUROATE
  7. RANITIDINE. [Concomitant]
     Active Substance: RANITIDINE
  8. XYREM [Suspect]
     Active Substance: SODIUM OXYBATE
     Indication: NARCOLEPSY
     Dosage: 2.25 G, BID
     Route: 048
     Dates: start: 201404, end: 201405
  9. ASCORBIC ACID. [Concomitant]
     Active Substance: ASCORBIC ACID
  10. ASTELIN [Concomitant]
     Active Substance: AZELASTINE HYDROCHLORIDE
  11. HYDROCHLOROTHIAZIDE. [Concomitant]
     Active Substance: HYDROCHLOROTHIAZIDE
  12. PROAIR HFA [Concomitant]
     Active Substance: ALBUTEROL SULFATE
  13. CLARINEX [Concomitant]
     Active Substance: DESLORATADINE
  14. SINGULAIR [Concomitant]
     Active Substance: MONTELUKAST SODIUM
  15. ASMANEX [Concomitant]
     Active Substance: MOMETASONE FUROATE
  16. NASONEX [Concomitant]
     Active Substance: MOMETASONE FUROATE
  17. MULTIVITAMINS [Concomitant]
     Active Substance: VITAMINS
  18. FISH OIL [Concomitant]
     Active Substance: FISH OIL
  19. LISINOPRIL AND HYDROCHLOROTHIAZIDE [Concomitant]
     Active Substance: HYDROCHLOROTHIAZIDE\LISINOPRIL
  20. LOVASTATIN. [Concomitant]
     Active Substance: LOVASTATIN
  21. XYREM [Suspect]
     Active Substance: SODIUM OXYBATE
     Indication: CATAPLEXY
     Dosage: DOSE ADJUSTMENTS
     Route: 048
  22. ALLERGY [Concomitant]
     Active Substance: UNSPECIFIED INGREDIENT
  23. CEFDINIR. [Concomitant]
     Active Substance: CEFDINIR

REACTIONS (1)
  - Oedema peripheral [Unknown]
